FAERS Safety Report 8927970 (Version 1)
Quarter: 2012Q4

REPORT INFORMATION
  Report Type: Spontaneous
  Country: US (occurrence: None)
  Receive Date: 20121126
  Receipt Date: 20121126
  Transmission Date: 20130627
  Serious: No
  Sender: FDA-Public Use
  Company Number: None

PATIENT
  Age: 48 Year
  Sex: Female
  Weight: 104.33 kg

DRUGS (1)
  1. LEVOTHYROXINE SODIUM 100 MCG [Suspect]
     Indication: HYPOTHYROIDISM
     Route: 048
     Dates: start: 20100511, end: 20110621

REACTIONS (1)
  - Drug ineffective [None]
